FAERS Safety Report 8533670-7 (Version None)
Quarter: 2012Q3

REPORT INFORMATION
  Report Type: 
  Country: None (occurrence: None)
  Receive Date: 20120724
  Receipt Date: 20120719
  Transmission Date: 20120928
  Serious: No
  Sender: FDA-Public Use
  Company Number: US-PFIZER INC-2012175647

PATIENT
  Sex: Female
  Weight: 78.005 kg

DRUGS (7)
  1. SYMBICORT [Concomitant]
     Indication: ASTHMA
     Dosage: UNK
  2. ATENOLOL [Concomitant]
     Indication: HYPERTENSION
     Dosage: UNK
  3. LYRICA [Suspect]
  4. FAMOTIDINE [Concomitant]
     Indication: GASTROOESOPHAGEAL REFLUX DISEASE
     Dosage: UNK
  5. SALBUTAMOL [Concomitant]
     Indication: ASTHMA
     Dosage: UNK
  6. LYRICA [Suspect]
     Indication: DIABETIC NEUROPATHY
     Dosage: 75 MG, 2X/DAY
     Route: 048
     Dates: start: 20110101, end: 20120701
  7. BENICAR [Concomitant]
     Indication: HYPERTENSION
     Dosage: UNK

REACTIONS (1)
  - PAIN IN EXTREMITY [None]
